FAERS Safety Report 13565642 (Version 1)
Quarter: 2017Q2

REPORT INFORMATION
  Report Type: Spontaneous
  Country: US (occurrence: US)
  Receive Date: 20170519
  Receipt Date: 20170519
  Transmission Date: 20170830
  Serious: No
  Sender: FDA-Public Use
  Company Number: US-BION-20160598

PATIENT
  Age: 90 Year
  Sex: Female
  Weight: 49.9 kg

DRUGS (9)
  1. ZOCOR [Concomitant]
     Active Substance: SIMVASTATIN
  2. BAYER ASPRIN [Concomitant]
  3. MOTRIN IB [Suspect]
     Active Substance: IBUPROFEN
     Indication: ANALGESIC THERAPY
     Dosage: 1 DF, 1-2 TIMES A DAY
     Route: 048
  4. GALANTIMINE [Concomitant]
  5. CITALAPRAM [Concomitant]
  6. EYE DROP [Concomitant]
     Active Substance: UNSPECIFIED INGREDIENT
  7. NORVASC [Concomitant]
     Active Substance: AMLODIPINE BESYLATE
  8. PANTOPRAZOLE SODIUM. [Concomitant]
     Active Substance: PANTOPRAZOLE SODIUM
  9. SILVER CENTRUM [Concomitant]

REACTIONS (1)
  - Drug ineffective [Unknown]
